FAERS Safety Report 25477882 (Version 2)
Quarter: 2025Q3

REPORT INFORMATION
  Report Type: Spontaneous
  Country: GB (occurrence: GB)
  Receive Date: 20250625
  Receipt Date: 20250707
  Transmission Date: 20251021
  Serious: Yes (Hospitalization)
  Sender: TEVA
  Company Number: GB-TEVA-VS-3344016

PATIENT
  Age: 60 Year
  Sex: Female

DRUGS (2)
  1. WARFARIN [Suspect]
     Active Substance: WARFARIN
     Indication: Anticoagulant therapy
     Route: 065
  2. ARGATROBAN [Suspect]
     Active Substance: ARGATROBAN
     Indication: Anticoagulant therapy
     Dosage: 2MCG/KG/MIN EQUIVALENT TO 7.2ML/HOUR
     Route: 042

REACTIONS (4)
  - Deep vein thrombosis [Recovering/Resolving]
  - Hyponatraemia [Unknown]
  - Drug ineffective [Unknown]
  - Hypotension [Unknown]
